FAERS Safety Report 6654439-4 (Version None)
Quarter: 2010Q1

REPORT INFORMATION
  Report Type: 
  Country: None (occurrence: None)
  Receive Date: 20100326
  Receipt Date: 20100317
  Transmission Date: 20100710
  Serious: Yes (Other)
  Sender: FDA-Public Use
  Company Number: GB-AMGEN-US400904

PATIENT
  Age: 37 Year
  Sex: Female

DRUGS (5)
  1. ENBREL [Suspect]
     Indication: ANKYLOSING SPONDYLITIS
     Route: 058
     Dates: start: 20041201, end: 20090701
  2. PARACETAMOL [Concomitant]
     Indication: ANKYLOSING SPONDYLITIS
     Route: 065
  3. NABUMETONE [Concomitant]
     Indication: ANKYLOSING SPONDYLITIS
     Route: 065
  4. FOLIC ACID [Concomitant]
     Indication: ANKYLOSING SPONDYLITIS
     Route: 048
  5. METHOTREXATE [Concomitant]
     Indication: ANKYLOSING SPONDYLITIS
     Route: 048

REACTIONS (2)
  - OPTIC NEURITIS [None]
  - VISUAL IMPAIRMENT [None]
